FAERS Safety Report 6121431-8 (Version None)
Quarter: 2009Q1

REPORT INFORMATION
  Report Type: 
  Country: None (occurrence: None)
  Receive Date: 20090317
  Receipt Date: 20090303
  Transmission Date: 20090719
  Serious: Yes (Other)
  Sender: FDA-Public Use
  Company Number: PHHY2008MX15300

PATIENT
  Age: 67 Year
  Sex: Female

DRUGS (1)
  1. ZELMAC [Suspect]
     Indication: IRRITABLE BOWEL SYNDROME
     Dosage: 6MG PER DAY
     Route: 048
     Dates: start: 20051001, end: 20081201

REACTIONS (5)
  - CARDIOMEGALY [None]
  - CORONARY ARTERIAL STENT INSERTION [None]
  - GASTRIC ULCER [None]
  - GASTRITIS [None]
  - INFARCTION [None]
